FAERS Safety Report 13193275 (Version 2)
Quarter: 2017Q1

REPORT INFORMATION
  Report Type: Spontaneous
  Country: FR (occurrence: FR)
  Receive Date: 20170207
  Receipt Date: 20170301
  Transmission Date: 20170428
  Serious: No
  Sender: FDA-Public Use
  Company Number: FR-JNJFOC-20170204462

PATIENT
  Age: 40 Year
  Sex: Female
  Weight: 58 kg

DRUGS (1)
  1. SIMPONI [Suspect]
     Active Substance: GOLIMUMAB
     Indication: ANKYLOSING SPONDYLITIS
     Route: 058
     Dates: start: 20161216

REACTIONS (5)
  - Chest discomfort [Unknown]
  - Dizziness [Unknown]
  - Pruritus generalised [Unknown]
  - Malaise [Unknown]
  - Dermatitis allergic [Unknown]
